FAERS Safety Report 12712623 (Version 4)
Quarter: 2016Q4

REPORT INFORMATION
  Report Type: Spontaneous
  Country: US (occurrence: US)
  Receive Date: 20160902
  Receipt Date: 20161227
  Transmission Date: 20170207
  Serious: Yes (Life-Threatening, Hospitalization, Disabling, Other)
  Sender: FDA-Public Use
  Company Number: US-009507513-1609USA001076

PATIENT
  Sex: Female
  Weight: 73.47 kg

DRUGS (1)
  1. NUVARING [Suspect]
     Active Substance: ETHINYL ESTRADIOL\ETONOGESTREL
     Indication: CONTRACEPTION
     Dosage: 3 WEEKS IN / 1 WEEK RING FREE
     Route: 067
     Dates: start: 2006, end: 201309

REACTIONS (19)
  - Fungal skin infection [Unknown]
  - Acute kidney injury [Recovered/Resolved]
  - Maternal exposure before pregnancy [Unknown]
  - Asthma [Unknown]
  - Aspiration [Unknown]
  - Oral fungal infection [Unknown]
  - Migraine [Unknown]
  - Cardio-respiratory arrest [Recovered/Resolved]
  - Pulmonary embolism [Unknown]
  - Drug hypersensitivity [Unknown]
  - Haemorrhagic anaemia [Recovering/Resolving]
  - Nephrolithiasis [Unknown]
  - Abortion spontaneous [Unknown]
  - Surgery [Unknown]
  - Ovarian cyst [Unknown]
  - Drug hypersensitivity [Unknown]
  - Chest pain [Unknown]
  - Swelling [Unknown]
  - Systemic inflammatory response syndrome [Recovering/Resolving]

NARRATIVE: CASE EVENT DATE: 200903
